FAERS Safety Report 5311416-3 (Version None)
Quarter: 2007Q2

REPORT INFORMATION
  Report Type: 
  Country: None (occurrence: None)
  Receive Date: 20070430
  Receipt Date: 20070426
  Transmission Date: 20071010
  Serious: Yes (Other)
  Sender: FDA-Public Use
  Company Number: US-GENENTECH-234593

PATIENT
  Age: 45 Year
  Sex: Male

DRUGS (1)
  1. RAPTIVA [Suspect]
     Indication: PSORIASIS
     Dosage: UNK, UNK
     Dates: start: 20060901

REACTIONS (1)
  - KAPOSI'S SARCOMA [None]
